FAERS Safety Report 14112582 (Version 3)
Quarter: 2019Q2

REPORT INFORMATION
  Report Type: Report from Study
  Country: None (occurrence: NL)
  Receive Date: 20171020
  Receipt Date: 20190401
  Transmission Date: 20190711
  Serious: Yes (Hospitalization)
  Sender: FDA-Public Use
  Company Number: NL-ABBVIE-17K-114-2138510-00

PATIENT
  Age: 73 Year
  Sex: Female

DRUGS (2)
  1. DUODOPA [Suspect]
     Active Substance: CARBIDOPA\LEVODOPA
     Indication: PARKINSON^S DISEASE
     Dosage: MD: 4.0, CD: 4.3, ED: 3.2, CND: 3.3, END: 1.7
     Route: 050
     Dates: start: 20150401
  2. DUODOPA [Suspect]
     Active Substance: CARBIDOPA\LEVODOPA
     Dosage: MD: 4.0, CD: 4.1, ED: 3.2, CND: 3.3, END: 1.7
     Route: 050

REACTIONS (11)
  - Thrombosis [Unknown]
  - Underdose [Unknown]
  - On and off phenomenon [Unknown]
  - Muscle rigidity [Unknown]
  - Fall [Recovered/Resolved]
  - Fibroma [Not Recovered/Not Resolved]
  - Reduced facial expression [Unknown]
  - Stoma site erythema [Not Recovered/Not Resolved]
  - Pulmonary embolism [Unknown]
  - Bronchitis [Unknown]
  - Stoma site discharge [Not Recovered/Not Resolved]

NARRATIVE: CASE EVENT DATE: 20180327
